FAERS Safety Report 7997336-4 (Version None)
Quarter: 2011Q4

REPORT INFORMATION
  Report Type: 
  Country: None (occurrence: None)
  Receive Date: 20111221
  Receipt Date: 20111215
  Transmission Date: 20120403
  Serious: Yes (Hospitalization, Other)
  Sender: FDA-Public Use
  Company Number: US-AMGEN-USASP2011061668

PATIENT
  Sex: Male

DRUGS (1)
  1. ENBREL [Suspect]
     Indication: RHEUMATOID ARTHRITIS
     Dosage: 50 MG, QWK
     Dates: start: 20090101

REACTIONS (6)
  - SURGERY [None]
  - INJECTION SITE PAIN [None]
  - PERONEAL NERVE PALSY [None]
  - BACK PAIN [None]
  - OEDEMA PERIPHERAL [None]
  - MUSCLE TIGHTNESS [None]
